FAERS Safety Report 20365393 (Version 25)
Quarter: 2024Q2

REPORT INFORMATION
  Report Type: Report from Study
  Country: CA (occurrence: CA)
  Receive Date: 20220122
  Receipt Date: 20240625
  Transmission Date: 20240716
  Serious: Yes (Other)
  Sender: FDA-Public Use
  Company Number: CA-BAUSCH-BL-2021-040997

PATIENT
  Sex: Female

DRUGS (29)
  1. CONTRAVE [Suspect]
     Active Substance: BUPROPION HYDROCHLORIDE\NALTREXONE HYDROCHLORIDE
     Indication: Weight control
     Dosage: 90/8 MG
     Route: 048
     Dates: start: 2021, end: 2021
  2. CONTRAVE [Suspect]
     Active Substance: BUPROPION HYDROCHLORIDE\NALTREXONE HYDROCHLORIDE
     Dosage: 90/8 MG, 2 TAB IN MORNING AND 2 TAB IN EVENING
     Route: 048
     Dates: start: 20210901, end: 20220115
  3. CONTRAVE [Suspect]
     Active Substance: BUPROPION HYDROCHLORIDE\NALTREXONE HYDROCHLORIDE
     Dosage: 90/8 MG, 2 TAB IN MORNING AND 2 TAB IN EVENING (SECOND ATTEMPT)
     Route: 048
     Dates: start: 20220118, end: 20220608
  4. CONTRAVE [Suspect]
     Active Substance: BUPROPION HYDROCHLORIDE\NALTREXONE HYDROCHLORIDE
     Dosage: 90/8 MG
     Route: 048
     Dates: start: 2022, end: 20220729
  5. CONTRAVE [Suspect]
     Active Substance: BUPROPION HYDROCHLORIDE\NALTREXONE HYDROCHLORIDE
     Dosage: 90/8 MG, (1 TAB Q PM)
     Route: 048
     Dates: start: 20220808, end: 20220808
  6. CONTRAVE [Suspect]
     Active Substance: BUPROPION HYDROCHLORIDE\NALTREXONE HYDROCHLORIDE
     Dosage: 90/8 MG, (1 TAB Q AM)
     Route: 048
     Dates: start: 20220809, end: 20220812
  7. CONTRAVE [Suspect]
     Active Substance: BUPROPION HYDROCHLORIDE\NALTREXONE HYDROCHLORIDE
     Dosage: 90/8 MG, 1 TAB Q AM, 1 TAB Q PM
     Route: 048
     Dates: start: 20220813, end: 20220817
  8. CONTRAVE [Suspect]
     Active Substance: BUPROPION HYDROCHLORIDE\NALTREXONE HYDROCHLORIDE
     Dosage: 90/8 MG, 2 TAB Q AM, 1 TAB Q PM
     Route: 048
     Dates: start: 20220818, end: 20220822
  9. CONTRAVE [Suspect]
     Active Substance: BUPROPION HYDROCHLORIDE\NALTREXONE HYDROCHLORIDE
     Dosage: 90/8 MG, 2 TAB Q AM,2 TAB Q PM
     Route: 048
     Dates: start: 20220823, end: 20230305
  10. CONTRAVE [Suspect]
     Active Substance: BUPROPION HYDROCHLORIDE\NALTREXONE HYDROCHLORIDE
     Dosage: 90/8 MG, 2 TAB QAM, 1 TAB QPM
     Route: 048
     Dates: start: 20230306, end: 2023
  11. CONTRAVE [Suspect]
     Active Substance: BUPROPION HYDROCHLORIDE\NALTREXONE HYDROCHLORIDE
     Dosage: 90/8 MG, 2 TAB QAM, 2 TAB QPM
     Route: 048
     Dates: start: 2023, end: 20230513
  12. CONTRAVE [Suspect]
     Active Substance: BUPROPION HYDROCHLORIDE\NALTREXONE HYDROCHLORIDE
     Dosage: 90/8MG, 1TAB/DAY
     Route: 048
     Dates: start: 20230801, end: 20230813
  13. CONTRAVE [Suspect]
     Active Substance: BUPROPION HYDROCHLORIDE\NALTREXONE HYDROCHLORIDE
     Dosage: 90/8MG, 1TAB QAM
     Route: 048
     Dates: start: 20230908, end: 20230917
  14. CONTRAVE [Suspect]
     Active Substance: BUPROPION HYDROCHLORIDE\NALTREXONE HYDROCHLORIDE
     Dosage: 90/8MG, 1TAB QAM, 1TAB QPM
     Route: 048
     Dates: start: 20230918, end: 2023
  15. CONTRAVE [Suspect]
     Active Substance: BUPROPION HYDROCHLORIDE\NALTREXONE HYDROCHLORIDE
     Dosage: 90/8MG, 1TAB/DAY
     Route: 048
     Dates: start: 20231020, end: 20231026
  16. CONTRAVE [Suspect]
     Active Substance: BUPROPION HYDROCHLORIDE\NALTREXONE HYDROCHLORIDE
     Dosage: 90/8MG, 1TAB QAM, 1TAB QPM
     Route: 048
     Dates: start: 20231027, end: 20231105
  17. CONTRAVE [Suspect]
     Active Substance: BUPROPION HYDROCHLORIDE\NALTREXONE HYDROCHLORIDE
     Dosage: 90/8 MG, 2 TAB QAM, 1TAB QPM
     Route: 048
     Dates: start: 20231106
  18. CONTRAVE [Suspect]
     Active Substance: BUPROPION HYDROCHLORIDE\NALTREXONE HYDROCHLORIDE
     Dosage: 90/8 MG, THIRD MONTH, TAKING AN UNKNOWN NUMBER OF TABS/DAY
     Route: 048
  19. CONTRAVE [Suspect]
     Active Substance: BUPROPION HYDROCHLORIDE\NALTREXONE HYDROCHLORIDE
     Dosage: 90/8 MG, REDUCED THE (CONTRAVE) DOSE TO 1 OR 2 TABS/DAY
     Route: 048
     Dates: start: 202401, end: 202401
  20. CONTRAVE [Suspect]
     Active Substance: BUPROPION HYDROCHLORIDE\NALTREXONE HYDROCHLORIDE
     Dosage: 90/8 MG, 4 TABS/DAY
     Route: 048
     Dates: start: 20240121, end: 2024
  21. CONTRAVE [Suspect]
     Active Substance: BUPROPION HYDROCHLORIDE\NALTREXONE HYDROCHLORIDE
     Dosage: 90/8 MG
     Route: 048
     Dates: start: 2024, end: 2024
  22. CONTRAVE [Suspect]
     Active Substance: BUPROPION HYDROCHLORIDE\NALTREXONE HYDROCHLORIDE
     Dosage: 90/8 MG, 1 TABS/DAY
     Route: 048
     Dates: start: 2024, end: 2024
  23. TYLENOL WITH CODEINE [Suspect]
     Active Substance: ACETAMINOPHEN\CODEINE PHOSPHATE
     Indication: Pain
     Dosage: UNK
     Route: 065
     Dates: start: 202208, end: 202208
  24. PREDNISONE [Interacting]
     Active Substance: PREDNISONE
     Indication: Chronic obstructive pulmonary disease
     Dosage: UNK
     Route: 065
  25. PREDNISONE [Interacting]
     Active Substance: PREDNISONE
     Dosage: UNK
     Route: 065
     Dates: start: 20230212
  26. EBASTINE [Suspect]
     Active Substance: EBASTINE
     Indication: Respiratory tract congestion
     Dosage: UNK
     Route: 065
     Dates: end: 20230929
  27. LORAZEPAM [Concomitant]
     Active Substance: LORAZEPAM
     Indication: Product used for unknown indication
     Dosage: UNK
  28. MYRBETRIQ [Concomitant]
     Active Substance: MIRABEGRON
     Indication: Hypertonic bladder
     Dosage: UNK
  29. GLUCOSAMINE [Concomitant]
     Active Substance: GLUCOSAMINE
     Indication: Arthropathy
     Dosage: UNK

REACTIONS (44)
  - Renal impairment [Unknown]
  - Pneumonia [Recovered/Resolved]
  - Disease recurrence [Recovered/Resolved]
  - Irritable bowel syndrome [Not Recovered/Not Resolved]
  - Food allergy [Unknown]
  - Dysphemia [Not Recovered/Not Resolved]
  - Decreased appetite [Unknown]
  - Taste disorder [Not Recovered/Not Resolved]
  - Gait disturbance [Recovered/Resolved]
  - Arthropathy [Recovered/Resolved]
  - Neck injury [Not Recovered/Not Resolved]
  - Viral infection [Recovered/Resolved]
  - Abdominal distension [Not Recovered/Not Resolved]
  - Respiratory tract congestion [Recovered/Resolved]
  - Fall [Not Recovered/Not Resolved]
  - Ligament sprain [Unknown]
  - Pain in extremity [Not Recovered/Not Resolved]
  - COVID-19 [Recovered/Resolved]
  - Nasopharyngitis [Not Recovered/Not Resolved]
  - Dysphonia [Not Recovered/Not Resolved]
  - Abdominal discomfort [Unknown]
  - Cough [Recovered/Resolved]
  - Influenza [Unknown]
  - Stress [Recovering/Resolving]
  - Feeling hot [Unknown]
  - Depressed mood [Recovering/Resolving]
  - Constipation [Recovered/Resolved]
  - Tremor [Not Recovered/Not Resolved]
  - Dry mouth [Not Recovered/Not Resolved]
  - Headache [Not Recovered/Not Resolved]
  - Nausea [Recovered/Resolved]
  - Anxiety [Recovering/Resolving]
  - Insomnia [Recovering/Resolving]
  - Feeling abnormal [Unknown]
  - Therapeutic response unexpected [Unknown]
  - Inability to afford medication [Unknown]
  - Insurance issue [Unknown]
  - Therapy interrupted [Unknown]
  - Labelled drug-drug interaction issue [Unknown]
  - Intentional product use issue [Unknown]
  - Product availability issue [Unknown]
  - Inappropriate schedule of product administration [Unknown]
  - Intentional product misuse [Unknown]
  - Product use issue [Unknown]

NARRATIVE: CASE EVENT DATE: 20210101
